FAERS Safety Report 9868716 (Version 1)
Quarter: 2014Q1

REPORT INFORMATION
  Report Type: Spontaneous
  Country: US (occurrence: US)
  Receive Date: 20140204
  Receipt Date: 20140204
  Transmission Date: 20141002
  Serious: No
  Sender: FDA-Public Use
  Company Number: US-ENDO PHARMACEUTICALS INC.-METH20130010

PATIENT
  Age: 79 Year
  Sex: Female

DRUGS (3)
  1. METHYLPREDNISOLONE [Suspect]
     Indication: UPPER-AIRWAY COUGH SYNDROME
     Dosage: 4 MG
     Dates: start: 20130612
  2. METHYLPREDNISOLONE [Suspect]
     Indication: COUGH
  3. CLARITHROMYCIN [Concomitant]
     Indication: COUGH
     Dosage: 500 MG
     Route: 048

REACTIONS (2)
  - Vomiting [Recovered/Resolved]
  - Drug ineffective for unapproved indication [Not Recovered/Not Resolved]
